FAERS Safety Report 8811693 (Version 2)
Quarter: 2012Q4

REPORT INFORMATION
  Report Type: Report from Study
  Country: DE (occurrence: DE)
  Receive Date: 20120927
  Receipt Date: 20121011
  Transmission Date: 20130627
  Serious: Yes (Hospitalization)
  Sender: FDA-Public Use
  Company Number: PHHY2012DE083484

PATIENT
  Sex: Female
  Weight: 54 kg

DRUGS (7)
  1. FTY 720 [Suspect]
     Indication: MULTIPLE SCLEROSIS
     Dosage: 0.5 mg, QD
     Route: 048
     Dates: start: 20120523
  2. LYRICA [Concomitant]
     Indication: PAIN IN EXTREMITY
     Dosage: 2 DF, QD
     Route: 048
  3. CYMBALTA [Concomitant]
     Indication: DEPRESSION
     Dosage: 30 mg, QD
     Route: 048
  4. BACLOFEN [Concomitant]
     Indication: MUSCLE SPASTICITY
     Dosage: 5 mg, QD
     Route: 048
  5. ATACAND [Concomitant]
     Indication: HYPERTENSION
     Dosage: 4 mg, QD
     Route: 048
  6. ASCOTOP [Concomitant]
     Indication: MIGRAINE
     Dosage: 2.5 mg, PRN
     Route: 048
  7. OMEPRAZOLE [Concomitant]
     Indication: PROPHYLAXIS AGAINST GASTROINTESTINAL ULCER
     Dosage: 10 mg, QD
     Route: 048
     Dates: start: 201206

REACTIONS (1)
  - Suicidal ideation [Recovered/Resolved]
